FAERS Safety Report 7780630-X (Version None)
Quarter: 2011Q3

REPORT INFORMATION
  Report Type: 
  Country: None (occurrence: None)
  Receive Date: 20110927
  Receipt Date: 20101213
  Transmission Date: 20111222
  Serious: No
  Sender: FDA-Public Use
  Company Number: US-BRISTOL-MYERS SQUIBB COMPANY-15438955

PATIENT
  Age: 59 Year
  Sex: Male

DRUGS (3)
  1. METOPROLOL TARTRATE [Concomitant]
  2. COUMADIN [Concomitant]
     Dosage: 1 DF = 7.5 UNIT NOT SPECIFIED
  3. AVAPRO [Suspect]
     Indication: HYPERTENSION
     Dates: start: 20100101

REACTIONS (2)
  - GOUT [None]
  - NEUROPATHY PERIPHERAL [None]
